FAERS Safety Report 24124583 (Version 2)
Quarter: 2024Q3

REPORT INFORMATION
  Report Type: Spontaneous
  Country: JP (occurrence: JP)
  Receive Date: 20240723
  Receipt Date: 20240926
  Transmission Date: 20241016
  Serious: Yes (Death, Hospitalization, Other)
  Sender: GILEAD
  Company Number: JP-GILEAD-2024-0681073

PATIENT
  Age: 83 Year
  Sex: Female
  Weight: 40 kg

DRUGS (5)
  1. VEKLURY [Suspect]
     Active Substance: REMDESIVIR
     Indication: COVID-19
     Dosage: 200 MG
     Route: 041
     Dates: start: 20240122, end: 20240122
  2. VEKLURY [Suspect]
     Active Substance: REMDESIVIR
     Dosage: 100 MG
     Route: 041
     Dates: start: 20240123, end: 20240126
  3. PREDNISOLONE [Suspect]
     Active Substance: PREDNISOLONE
     Indication: Liver disorder
     Dosage: 1 MG/KG
     Route: 065
     Dates: start: 20240127, end: 20240202
  4. ELCATONIN [Suspect]
     Active Substance: ELCATONIN
     Indication: COVID-19
     Dosage: UNK
     Route: 065
  5. DEXTROSE\SODIUM CHLORIDE\SODIUM LACTATE [Concomitant]
     Active Substance: DEXTROSE\SODIUM CHLORIDE\SODIUM LACTATE
     Indication: COVID-19
     Dosage: UNK
     Dates: start: 20240122

REACTIONS (3)
  - Liver disorder [Recovered/Resolved]
  - Pancreatitis [Recovered/Resolved]
  - Bacterial infection [Fatal]

NARRATIVE: CASE EVENT DATE: 20240126
